FAERS Safety Report 5501005-X (Version None)
Quarter: 2007Q4

REPORT INFORMATION
  Report Type: 
  Country: None (occurrence: None)
  Receive Date: 20071029
  Receipt Date: 20071015
  Transmission Date: 20080405
  Serious: Yes (Hospitalization)
  Sender: FDA-Public Use
  Company Number: DE-SHR-DE-2007-032619

PATIENT
  Sex: Male

DRUGS (2)
  1. BETASERON [Suspect]
     Dosage: UNK, EVERY 2D
     Route: 058
  2. COPAXONE [Concomitant]

REACTIONS (5)
  - COORDINATION ABNORMAL [None]
  - CSF TEST ABNORMAL [None]
  - GAIT DISTURBANCE [None]
  - GENERAL PHYSICAL HEALTH DETERIORATION [None]
  - MUSCLE SPASMS [None]
